FAERS Safety Report 9233061 (Version 2)
Quarter: 2013Q3

REPORT INFORMATION
  Report Type: Report from Study
  Country: DE (occurrence: DE)
  Receive Date: 20130416
  Receipt Date: 20130718
  Transmission Date: 20140515
  Serious: Yes (Hospitalization, Other)
  Sender: FDA-Public Use
  Company Number: PHHY2013DE036051

PATIENT
  Age: 71 Year
  Sex: Female

DRUGS (1)
  1. EXELON PATCH [Suspect]
     Indication: DEMENTIA
     Dosage: 9.5 MG, DAILY
     Route: 062
     Dates: start: 201205

REACTIONS (5)
  - Femoral neck fracture [Not Recovered/Not Resolved]
  - Fall [Not Recovered/Not Resolved]
  - Abnormal behaviour [Unknown]
  - Dementia [Unknown]
  - Disorientation [Unknown]
